FAERS Safety Report 11271311 (Version 2)
Quarter: 2015Q4

REPORT INFORMATION
  Report Type: Spontaneous
  Country: US (occurrence: US)
  Receive Date: 20150714
  Receipt Date: 20151116
  Transmission Date: 20160304
  Serious: No
  Sender: FDA-Public Use
  Company Number: GXBR2015US001490

PATIENT
  Sex: Female
  Weight: 53.52 kg

DRUGS (2)
  1. PHENDIMETRAZINE TARTRATE TABLETS USP [Suspect]
     Active Substance: PHENDIMETRAZINE TARTRATE
     Indication: DECREASED APPETITE
     Dosage: 35 MG, BID-TID
     Route: 048
  2. PHENDIMETRAZINE TARTRATE TABLETS USP [Suspect]
     Active Substance: PHENDIMETRAZINE TARTRATE
     Indication: DISTURBANCE IN ATTENTION

REACTIONS (5)
  - Somnolence [Not Recovered/Not Resolved]
  - Incorrect dose administered [Unknown]
  - Nausea [Recovered/Resolved]
  - Malaise [Not Recovered/Not Resolved]
  - Drug ineffective [Not Recovered/Not Resolved]
